FAERS Safety Report 25173062 (Version 1)
Quarter: 2025Q2

REPORT INFORMATION
  Report Type: Spontaneous
  Country: US (occurrence: US)
  Receive Date: 20250408
  Receipt Date: 20250408
  Transmission Date: 20250717
  Serious: No
  Sender: ROCHE
  Company Number: US-ROCHE-10000247084

PATIENT
  Age: 26 Year
  Sex: Female

DRUGS (1)
  1. RITUXAN [Suspect]
     Active Substance: RITUXIMAB
     Indication: Thrombocytopenia
     Route: 065

REACTIONS (3)
  - Platelet count decreased [Unknown]
  - Off label use [Unknown]
  - Systemic lupus erythematosus [Unknown]
